FAERS Safety Report 7315887-2 (Version None)
Quarter: 2011Q1

REPORT INFORMATION
  Report Type: 
  Country: None (occurrence: None)
  Receive Date: 20110217
  Receipt Date: 20110217
  Transmission Date: 20110831
  Serious: Yes (Hospitalization)
  Sender: FDA-Public Use
  Company Number: None

PATIENT
  Sex: Male
  Weight: 78.6991 kg

DRUGS (25)
  1. SIMVASTATIN [Concomitant]
  2. PROTONIX [Concomitant]
  3. ONDANSETRON HCL (ZOFRAN) [Concomitant]
  4. PEPCID [Concomitant]
  5. ZOCOR [Concomitant]
  6. CHLOR-CON [Concomitant]
  7. DIPYRIDAMOLE [Concomitant]
  8. FISH OIL [Concomitant]
  9. HUMULIN R [Concomitant]
  10. COMPAZINE [Concomitant]
  11. OXALIPLATIN [Suspect]
     Indication: PANCREATIC CARCINOMA
     Dosage: 85 MG/M2 IV (ONE DOSE ONLY)
     Route: 042
     Dates: start: 20101230
  12. ERLOTINIB [Suspect]
     Indication: PANCREATIC CARCINOMA
     Dosage: 150 MG PO X 6 DAYS
     Route: 048
     Dates: start: 20101231, end: 20110105
  13. BENICAR [Concomitant]
  14. FUROSEMIDE [Concomitant]
  15. M.V.I. [Concomitant]
  16. HEPARIN [Concomitant]
  17. GEMCITABINE [Suspect]
     Indication: PANCREATIC CARCINOMA
     Dosage: 800 MG/M2 IV (ONE DOSE ONLY)
     Route: 042
     Dates: start: 20101229
  18. GLIMEPIRIDE [Concomitant]
  19. URSODIOL (ACTIGALL) [Concomitant]
  20. AMLODIPINE [Concomitant]
  21. OXYCODONE SR (OXYCONTIN) [Concomitant]
  22. METOPROLOL [Concomitant]
  23. PROCHLORPERAZINE MALEATE [Concomitant]
  24. PROSCAR [Concomitant]
  25. ALDACTONE [Concomitant]

REACTIONS (1)
  - OBSTRUCTION GASTRIC [None]
